FAERS Safety Report 16324989 (Version 3)
Quarter: 2019Q2

REPORT INFORMATION
  Report Type: Report from Study
  Country: US (occurrence: US)
  Receive Date: 20190517
  Receipt Date: 20190520
  Transmission Date: 20190711
  Serious: Yes (Disabling)
  Sender: FDA-Public Use
  Company Number: US-NEUROCRINE BIOSCIENCES INC.-2019NBI01209

PATIENT
  Age: 17 Year
  Sex: Female
  Weight: 86.26 kg

DRUGS (13)
  1. VALBENAZINE. [Suspect]
     Active Substance: VALBENAZINE
     Route: 048
     Dates: start: 20190305, end: 2019
  2. CLONIDINE. [Concomitant]
     Active Substance: CLONIDINE
     Indication: TOURETTE^S DISORDER
     Route: 048
     Dates: start: 20180829
  3. BACTRIM [Concomitant]
     Active Substance: SULFAMETHOXAZOLE\TRIMETHOPRIM
     Indication: URINARY TRACT INFECTION
     Dosage: 400-80 MG
     Route: 048
     Dates: start: 20190329
  4. LUMA [Concomitant]
     Indication: SUPPLEMENTATION THERAPY
     Route: 048
     Dates: start: 20180829
  5. OMEGA 3 FATTY ACIDS [Concomitant]
     Active Substance: OMEGA-3 FATTY ACIDS
     Indication: SUPPLEMENTATION THERAPY
     Route: 048
     Dates: start: 20181004
  6. METFORMIN ER [Concomitant]
     Active Substance: METFORMIN HYDROCHLORIDE
     Indication: POLYCYSTIC OVARIES
     Route: 048
     Dates: start: 20181004
  7. PROGESTERONE. [Concomitant]
     Active Substance: PROGESTERONE
     Route: 048
     Dates: start: 20181115
  8. VALBENAZINE. [Suspect]
     Active Substance: VALBENAZINE
     Indication: TOURETTE^S DISORDER
     Route: 048
     Dates: start: 20190206, end: 20190219
  9. PLACEBO NBI-98854 [Suspect]
     Active Substance: VALBENAZINE
     Indication: TOURETTE^S DISORDER
     Route: 048
     Dates: start: 2019, end: 20190508
  10. NP THYROID [Concomitant]
     Active Substance: LEVOTHYROXINE\LIOTHYRONINE
     Route: 048
     Dates: start: 20181101
  11. VALBENAZINE. [Suspect]
     Active Substance: VALBENAZINE
     Route: 048
     Dates: start: 20190220, end: 20190304
  12. TRAZODONE [Concomitant]
     Active Substance: TRAZODONE HYDROCHLORIDE
     Indication: INSOMNIA
     Route: 048
     Dates: start: 20181115
  13. TRAZODONE [Concomitant]
     Active Substance: TRAZODONE HYDROCHLORIDE
     Indication: DEPRESSION

REACTIONS (1)
  - Tourette^s disorder [Recovering/Resolving]

NARRATIVE: CASE EVENT DATE: 20190502
